FAERS Safety Report 26186117 (Version 1)
Quarter: 2025Q4

REPORT INFORMATION
  Report Type: Spontaneous
  Country: US (occurrence: None)
  Receive Date: 20251221
  Receipt Date: 20251221
  Transmission Date: 20260117
  Serious: Yes (Other)
  Sender: FDA-CTU
  Company Number: None

PATIENT
  Age: 60 Year
  Sex: Female

DRUGS (2)
  1. AZITHROMYCIN [Suspect]
     Active Substance: AZITHROMYCIN
     Indication: Respiratory tract infection
     Dosage: 250 MG DAILY ORAL
     Route: 048
     Dates: start: 20251219, end: 20251220
  2. BENZONATATE [Suspect]
     Active Substance: BENZONATATE

REACTIONS (1)
  - Hypertension [None]

NARRATIVE: CASE EVENT DATE: 20251220
